FAERS Safety Report 8312406-9 (Version None)
Quarter: 2012Q2

REPORT INFORMATION
  Report Type: 
  Country: None (occurrence: None)
  Receive Date: 20120425
  Receipt Date: 20120412
  Transmission Date: 20120825
  Serious: Yes (Other)
  Sender: FDA-Public Use
  Company Number: PHHY2012DE033587

PATIENT

DRUGS (3)
  1. PREDNISONE TAB [Suspect]
     Indication: LIVER TRANSPLANT
  2. CYCLOSPORINE [Suspect]
     Indication: LIVER TRANSPLANT
  3. MYCOPHENOLATE MOFETIL [Suspect]
     Indication: LIVER TRANSPLANT

REACTIONS (1)
  - RENAL IMPAIRMENT [None]
